FAERS Safety Report 6960587-1 (Version None)
Quarter: 2010Q3

REPORT INFORMATION
  Report Type: 
  Country: None (occurrence: None)
  Receive Date: 20100901
  Receipt Date: 20100824
  Transmission Date: 20110219
  Serious: Yes (Other)
  Sender: FDA-Public Use
  Company Number: JP-PFIZER INC-2010106644

PATIENT

DRUGS (2)
  1. ZOLOFT [Suspect]
     Dosage: 25 MG, 1X/DAY
     Route: 048
     Dates: end: 20100822
  2. MYSLEE [Concomitant]
     Dosage: UNK

REACTIONS (2)
  - APHAGIA [None]
  - CHEST DISCOMFORT [None]
